FAERS Safety Report 8793433 (Version 1)
Quarter: 2012Q4

REPORT INFORMATION
  Report Type: 
  Country: US (occurrence: US)
  Receive Date: 20120918
  Receipt Date: 20120918
  Transmission Date: 20130627
  Serious: Yes (Other)
  Sender: FDA-Public Use
  Company Number: PHEH2012US017998

PATIENT
  Age: 67 Year
  Sex: Female
  Weight: 58.96 kg

DRUGS (8)
  1. EXJADE [Suspect]
     Dosage: 1000 mg, daily
     Route: 048
  2. LOTREL [Concomitant]
     Dosage: 10-40 mg, UNK
  3. PROTONIX [Concomitant]
  4. FOLIC ACID [Concomitant]
  5. ZYRTEC [Concomitant]
  6. VITAMIN C [Concomitant]
  7. NYSTATIN [Concomitant]
  8. AZELASTINE [Concomitant]

REACTIONS (1)
  - Osteoporosis [Unknown]
